FAERS Safety Report 24631599 (Version 1)
Quarter: 2024Q4

REPORT INFORMATION
  Report Type: Spontaneous
  Country: US (occurrence: None)
  Receive Date: 20241118
  Receipt Date: 20241118
  Transmission Date: 20250115
  Serious: Yes (Hospitalization)
  Sender: Public
  Company Number: None

PATIENT
  Age: 68 Year
  Sex: Male
  Weight: 88.9 kg

DRUGS (1)
  1. NUBEQA [Suspect]
     Active Substance: DAROLUTAMIDE
     Indication: Prostate cancer metastatic
     Dosage: 600 MG TWICE A DAY ORAL
     Route: 048
     Dates: start: 20241003

REACTIONS (2)
  - Hyperglycaemia [None]
  - Therapy change [None]

NARRATIVE: CASE EVENT DATE: 20241006
